FAERS Safety Report 6201642-3 (Version None)
Quarter: 2009Q2

REPORT INFORMATION
  Report Type: 
  Country: None (occurrence: None)
  Receive Date: 20090526
  Receipt Date: 20070724
  Transmission Date: 20091009
  Serious: No
  Sender: FDA-Public Use
  Company Number: US-BRISTOL-MYERS SQUIBB COMPANY-14107379

PATIENT
  Sex: Female

DRUGS (2)
  1. BARACLUDE [Suspect]
     Route: 048
  2. VITAMINS [Concomitant]

REACTIONS (1)
  - HEADACHE [None]
